FAERS Safety Report 13264011 (Version 1)
Quarter: 2017Q1

REPORT INFORMATION
  Report Type: Report from Study
  Country: US (occurrence: US)
  Receive Date: 20170223
  Receipt Date: 20170223
  Transmission Date: 20170428
  Serious: Yes (Death, Life-Threatening, Hospitalization)
  Sender: FDA-Public Use
  Company Number: US-ROCHE-1896731

PATIENT
  Age: 35 Year
  Sex: Male
  Weight: 97.96 kg

DRUGS (7)
  1. ATEZOLIZUMAB [Suspect]
     Active Substance: ATEZOLIZUMAB
     Indication: SYNOVIAL SARCOMA
     Dosage: THE MOST RECENT DOSE OF ATEZOLIZUMAB PRIOR TO THE ONSET OF THE EVENT WAS ON 22/NOV/2016.
     Route: 042
     Dates: start: 20161011
  2. CMB305 [Suspect]
     Active Substance: INVESTIGATIONAL PRODUCT
     Indication: SYNOVIAL SARCOMA
     Dosage: LV305 (1X10^10 VG ID); MOST RECENT DOSE: 22NOV2016?G305 (5 UG GLA-SE + 250 UG NY-ESO-1): START DATE:
     Route: 023
     Dates: start: 20161011
  3. OXYCODONE [Concomitant]
     Active Substance: OXYCODONE
     Route: 048
     Dates: start: 20160930
  4. LOPRESSOR [Concomitant]
     Active Substance: METOPROLOL TARTRATE
     Route: 048
     Dates: start: 20161025
  5. AMIODARONE HYDROCHLORIDE. [Concomitant]
     Active Substance: AMIODARONE HYDROCHLORIDE
     Route: 048
     Dates: start: 20161025
  6. LEVAQUIN [Concomitant]
     Active Substance: LEVOFLOXACIN
     Route: 065
     Dates: start: 20160804, end: 20160820
  7. ALLEGRA-D [Concomitant]
     Active Substance: FEXOFENADINE\PSEUDOEPHEDRINE
     Route: 065
     Dates: start: 20160830

REACTIONS (3)
  - Respiratory failure [Recovering/Resolving]
  - Disease progression [Fatal]
  - Pneumonitis [Fatal]

NARRATIVE: CASE EVENT DATE: 20161210
